FAERS Safety Report 6062963-0 (Version None)
Quarter: 2009Q1

REPORT INFORMATION
  Report Type: 
  Country: None (occurrence: None)
  Receive Date: 20090203
  Receipt Date: 20090130
  Transmission Date: 20090719
  Serious: Yes (Hospitalization)
  Sender: FDA-Public Use
  Company Number: A0766385A

PATIENT
  Age: 67 Year
  Sex: Female

DRUGS (3)
  1. AVANDIA [Suspect]
     Route: 048
     Dates: start: 20050801, end: 20071101
  2. GLUCOPHAGE [Concomitant]
  3. METFORMIN [Concomitant]

REACTIONS (1)
  - MYOCARDIAL INFARCTION [None]
